FAERS Safety Report 7421242 (Version 6)
Quarter: 2015Q1

REPORT INFORMATION
  Report Type: Report from Study
  Country: US (occurrence: US)
  Receive Date: 20100616
  Receipt Date: 20150206
  Transmission Date: 20150721
  Serious: No
  Sender: FDA-Public Use
  Company Number: US-ASTRAZENECA-2010SE03508

PATIENT
  Age: 65 Year
  Sex: Female
  Weight: 59.9 kg

DRUGS (1)
  1. ATACAND [Suspect]
     Active Substance: CANDESARTAN CILEXETIL
     Indication: BLOOD PRESSURE
     Route: 048

REACTIONS (17)
  - Arthritis [Unknown]
  - Drug ineffective [Unknown]
  - Pain [Unknown]
  - Pollakiuria [Unknown]
  - Blood glucose decreased [Unknown]
  - Hypertension [Unknown]
  - Palpitations [Unknown]
  - Paraesthesia [Unknown]
  - Mood altered [Unknown]
  - Nervousness [Unknown]
  - Nasopharyngitis [Unknown]
  - Sleep disorder due to a general medical condition [Unknown]
  - Sciatica [Unknown]
  - Feeling abnormal [Unknown]
  - Stress [Unknown]
  - Dizziness [Unknown]
  - Heart rate increased [Unknown]

NARRATIVE: CASE EVENT DATE: 2009
